FAERS Safety Report 5121466-8 (Version None)
Quarter: 2006Q4

REPORT INFORMATION
  Report Type: 
  Country: None (occurrence: None)
  Receive Date: 20061006
  Receipt Date: 20061003
  Transmission Date: 20070319
  Serious: Yes (Death, Hospitalization)
  Sender: FDA-Public Use
  Company Number: GB-SP-2006-02601

PATIENT
  Sex: Male

DRUGS (1)
  1. IMMUCYST [Suspect]
     Route: 065

REACTIONS (1)
  - MYOCARDIAL INFARCTION [None]
